FAERS Safety Report 22962975 (Version 33)
Quarter: 2024Q3

REPORT INFORMATION
  Report Type: Spontaneous
  Country: CA (occurrence: CA)
  Receive Date: 20230920
  Receipt Date: 20240730
  Transmission Date: 20241016
  Serious: Yes (Other)
  Sender: PFIZER
  Company Number: CA-PFIZER INC-PV202300141155

PATIENT
  Age: 75 Year
  Sex: Male
  Weight: 74.2 kg

DRUGS (25)
  1. ZIRABEV [Suspect]
     Active Substance: BEVACIZUMAB-BVZR
     Indication: Colon cancer metastatic
     Dosage: 5 MG/KG, EVERY 2 WEEKS
     Route: 042
  2. ZIRABEV [Suspect]
     Active Substance: BEVACIZUMAB-BVZR
     Dosage: 370 MG
     Route: 042
     Dates: start: 20230914
  3. ZIRABEV [Suspect]
     Active Substance: BEVACIZUMAB-BVZR
     Dosage: 379 MG
     Route: 042
     Dates: start: 20231010
  4. ZIRABEV [Suspect]
     Active Substance: BEVACIZUMAB-BVZR
     Dosage: 379 MG
     Route: 042
     Dates: start: 20231024
  5. ZIRABEV [Suspect]
     Active Substance: BEVACIZUMAB-BVZR
     Dosage: 379 MG, EVERY 2 WEEKS X 2 REPEATS
     Route: 042
     Dates: start: 20231107
  6. ZIRABEV [Suspect]
     Active Substance: BEVACIZUMAB-BVZR
     Dosage: 379 MG
     Route: 042
     Dates: start: 20231121
  7. ZIRABEV [Suspect]
     Active Substance: BEVACIZUMAB-BVZR
     Dosage: 379 MG
     Route: 042
     Dates: start: 20231205
  8. ZIRABEV [Suspect]
     Active Substance: BEVACIZUMAB-BVZR
     Dosage: 379 MG
     Route: 042
     Dates: start: 20231219
  9. ZIRABEV [Suspect]
     Active Substance: BEVACIZUMAB-BVZR
     Dosage: 379 MG
     Route: 042
     Dates: start: 20240102
  10. ZIRABEV [Suspect]
     Active Substance: BEVACIZUMAB-BVZR
     Dosage: 379 MG EVERY 2 WEEKS
     Route: 042
     Dates: start: 20240116
  11. ZIRABEV [Suspect]
     Active Substance: BEVACIZUMAB-BVZR
     Dosage: 379 MG
     Route: 042
     Dates: start: 20240118
  12. ZIRABEV [Suspect]
     Active Substance: BEVACIZUMAB-BVZR
     Dosage: 379 MG
     Route: 042
     Dates: start: 20240130
  13. ZIRABEV [Suspect]
     Active Substance: BEVACIZUMAB-BVZR
     Dosage: 379 MG
     Route: 042
     Dates: start: 20240213
  14. ZIRABEV [Suspect]
     Active Substance: BEVACIZUMAB-BVZR
     Dosage: 379 MG
     Route: 042
     Dates: start: 20240227
  15. ZIRABEV [Suspect]
     Active Substance: BEVACIZUMAB-BVZR
     Dosage: 370 MG
     Route: 042
     Dates: start: 20240312
  16. ZIRABEV [Suspect]
     Active Substance: BEVACIZUMAB-BVZR
     Dosage: 370 MG
     Route: 042
     Dates: start: 20240326
  17. ZIRABEV [Suspect]
     Active Substance: BEVACIZUMAB-BVZR
     Dosage: 370 MG, EVERY 2 WEEKS
     Route: 042
     Dates: start: 20240409
  18. ZIRABEV [Suspect]
     Active Substance: BEVACIZUMAB-BVZR
     Dosage: 370 MG
     Route: 042
     Dates: start: 20240528
  19. ZIRABEV [Suspect]
     Active Substance: BEVACIZUMAB-BVZR
     Dosage: 5 MG/KG (370 MG) EVERY 2 WEEKS
     Route: 042
     Dates: start: 20240611
  20. ACETAMINOPHEN [Concomitant]
     Active Substance: ACETAMINOPHEN
     Indication: Premedication
     Dosage: 650 MG
     Dates: start: 20231121, end: 20231121
  21. ACETAMINOPHEN [Concomitant]
     Active Substance: ACETAMINOPHEN
     Dosage: 650 MG
     Dates: start: 20231205, end: 20231205
  22. BENADRYL [Concomitant]
     Active Substance: DIPHENHYDRAMINE HYDROCHLORIDE
     Indication: Premedication
     Dosage: 50 MG
     Dates: start: 20231121, end: 20231121
  23. BENADRYL [Concomitant]
     Active Substance: DIPHENHYDRAMINE HYDROCHLORIDE
     Dosage: 50 MG
     Dates: start: 20231205, end: 20231205
  24. FLUOROURACIL\LEUCOVORIN CALCIUM\OXALIPLATIN [Concomitant]
     Active Substance: FLUOROURACIL\LEUCOVORIN CALCIUM\OXALIPLATIN
     Indication: Chemotherapy
     Dosage: UNK
  25. TIPIRACIL HYDROCHLORIDE\TRIFLURIDINE [Concomitant]
     Active Substance: TIPIRACIL HYDROCHLORIDE\TRIFLURIDINE
     Indication: Chemotherapy
     Dosage: UNK, 15MG/6.14 MG
     Route: 048

REACTIONS (12)
  - White coat hypertension [Unknown]
  - Neutropenia [Not Recovered/Not Resolved]
  - Tooth abscess [Unknown]
  - Neoplasm progression [Unknown]
  - Hypertension [Recovered/Resolved]
  - Blood pressure systolic increased [Recovered/Resolved]
  - Heart rate irregular [Unknown]
  - Pain [Recovering/Resolving]
  - Dry mouth [Not Recovered/Not Resolved]
  - Fatigue [Recovering/Resolving]
  - Constipation [Not Recovered/Not Resolved]
  - Off label use [Unknown]

NARRATIVE: CASE EVENT DATE: 20230901
